FAERS Safety Report 4349722-1 (Version None)
Quarter: 2004Q1

REPORT INFORMATION
  Report Type: 
  Country: None (occurrence: None)
  Receive Date: 20040329
  Receipt Date: 20040126
  Transmission Date: 20041129
  Serious: No
  Sender: FDA-Public Use
  Company Number: USA040157568

PATIENT
  Age: 10 Year
  Sex: Female
  Weight: 30 kg

DRUGS (4)
  1. STRATTERA [Suspect]
     Indication: DISTURBANCE IN ATTENTION
     Dosage: 60 MG/DAY
     Dates: start: 20030401
  2. CONCERTA [Concomitant]
  3. ADDERALL 10 [Concomitant]
  4. RITALIN [Concomitant]

REACTIONS (5)
  - DRUG INEFFECTIVE [None]
  - EARLY MORNING AWAKENING [None]
  - FATIGUE [None]
  - HEADACHE [None]
  - PRESCRIBED OVERDOSE [None]
